FAERS Safety Report 9058333 (Version 3)
Quarter: 2015Q4

REPORT INFORMATION
  Report Type: Spontaneous
  Country: US (occurrence: US)
  Receive Date: 20130211
  Receipt Date: 20151222
  Transmission Date: 20160305
  Serious: Yes (Hospitalization, Other)
  Sender: FDA-Public Use
  Company Number: US-BAYER-2013-015151

PATIENT
  Age: 31 Year
  Sex: Female
  Weight: 128 kg

DRUGS (9)
  1. YASMIN [Suspect]
     Active Substance: DROSPIRENONE\ETHINYL ESTRADIOL
  2. ONDANSETRON [Concomitant]
     Active Substance: ONDANSETRON
     Dosage: 4 MG, UNK
     Dates: start: 20070404
  3. AZITHROMYCIN [Concomitant]
     Active Substance: AZITHROMYCIN ANHYDROUS
     Dosage: 250 MG, UNK
     Dates: start: 20070420
  4. IBUPROFEN. [Concomitant]
     Active Substance: IBUPROFEN
     Dosage: 800 MG, UNK
     Dates: start: 20070418
  5. LISINOPRIL. [Concomitant]
     Active Substance: LISINOPRIL
     Dosage: 2.5 MG, UNK
  6. YAZ [Suspect]
     Active Substance: DROSPIRENONE\ETHINYL ESTRADIOL
  7. INSULIN [INSULIN] [Concomitant]
     Active Substance: INSULIN NOS
  8. TRAMADOL. [Concomitant]
     Active Substance: TRAMADOL
     Dosage: 50 MG, UNK
     Dates: start: 20070404
  9. CIPROFLOXACIN. [Concomitant]
     Active Substance: CIPROFLOXACIN
     Dosage: 500 MG, UNK
     Dates: start: 20070404

REACTIONS (14)
  - Cerebrovascular accident [None]
  - Dysgraphia [None]
  - Injury [None]
  - Abasia [None]
  - Carotid artery thrombosis [Recovered/Resolved]
  - Paralysis [None]
  - Cerebral infarction [None]
  - Memory impairment [None]
  - Emotional distress [None]
  - Thrombosis [None]
  - Muscle spasms [None]
  - Stress [None]
  - Activities of daily living impaired [None]
  - Crying [None]

NARRATIVE: CASE EVENT DATE: 200704
